FAERS Safety Report 5679154-5 (Version None)
Quarter: 2008Q1

REPORT INFORMATION
  Report Type: 
  Country: None (occurrence: None)
  Receive Date: 20080325
  Receipt Date: 20080318
  Transmission Date: 20080703
  Serious: Yes (Death, Hospitalization)
  Sender: FDA-Public Use
  Company Number: US-SANOFI-SYNTHELABO-F03200700192

PATIENT
  Sex: Male
  Weight: 85.5 kg

DRUGS (7)
  1. OXALIPLATIN [Suspect]
     Indication: NEOPLASM MALIGNANT
     Route: 042
     Dates: start: 20071009, end: 20071009
  2. DOCETAXEL [Suspect]
     Indication: NEOPLASM MALIGNANT
     Route: 042
     Dates: start: 20071009, end: 20071009
  3. KAYEXALATE [Concomitant]
     Indication: HYPERKALAEMIA
     Dosage: 15 GM/60 ML
     Route: 065
     Dates: start: 20071016
  4. SODIUM BICARBONATE [Concomitant]
     Indication: HYPERKALAEMIA
     Route: 065
     Dates: start: 20071016
  5. ALBUTEROL [Concomitant]
     Indication: PNEUMONIA
     Dosage: 10 MG/2 ML
     Route: 065
     Dates: start: 20071017
  6. METRONIDAZOLE HCL [Concomitant]
     Indication: CLOSTRIDIAL INFECTION
     Route: 065
     Dates: start: 20070925
  7. FILGRASTIM [Concomitant]
     Indication: NEUTROPENIA
     Route: 058
     Dates: start: 20071010

REACTIONS (6)
  - ARRHYTHMIA [None]
  - ASPIRATION [None]
  - DEHYDRATION [None]
  - HYPERKALAEMIA [None]
  - METABOLIC ACIDOSIS [None]
  - VOMITING [None]
